FAERS Safety Report 9342777 (Version 1)
Quarter: 2013Q2

REPORT INFORMATION
  Report Type: Spontaneous
  Country: US (occurrence: US)
  Receive Date: 20130611
  Receipt Date: 20130611
  Transmission Date: 20140414
  Serious: Yes (Other)
  Sender: FDA-Public Use
  Company Number: US-GLAXOSMITHKLINE-A0797775A

PATIENT
  Age: 41 Year
  Sex: Male
  Weight: 81.8 kg

DRUGS (1)
  1. AVANDAMET [Suspect]
     Indication: TYPE 2 DIABETES MELLITUS
     Route: 048
     Dates: end: 20080515

REACTIONS (2)
  - Myocardial infarction [Unknown]
  - Venous insufficiency [Unknown]
